FAERS Safety Report 7830837-8 (Version None)
Quarter: 2011Q4

REPORT INFORMATION
  Report Type: 
  Country: None (occurrence: None)
  Receive Date: 20111021
  Receipt Date: 20111017
  Transmission Date: 20120403
  Serious: Yes (Life-Threatening, Hospitalization)
  Sender: FDA-Public Use
  Company Number: CZ-PFIZER INC-2011241789

PATIENT
  Age: 9 Year
  Sex: Male
  Weight: 25.7 kg

DRUGS (19)
  1. VORICONAZOLE [Suspect]
     Dosage: 140 MG, 2X/DAY
     Route: 042
     Dates: start: 20110921, end: 20110922
  2. METHOTREXATE SODIUM [Suspect]
     Dosage: 12 MG, SINGLE
     Route: 037
     Dates: start: 20111005, end: 20111005
  3. BACLOFEN [Concomitant]
     Indication: PAIN
     Dosage: 5 MG, 2X/DAY
     Route: 048
     Dates: start: 20111006
  4. METHOTREXATE SODIUM [Suspect]
     Indication: CHEMOTHERAPY
     Dosage: 1030 MG, SINGLE
     Route: 042
     Dates: start: 20111004, end: 20111004
  5. DEXAMETHASONE [Suspect]
     Dosage: 2 MG, 1X/DAY
     Route: 048
     Dates: start: 20111004, end: 20111007
  6. DEXAMETHASONE SODIUM PHOSPHATE [Suspect]
     Dosage: 2 MG, 1X/DAY
     Route: 042
     Dates: start: 20111007, end: 20111009
  7. DOXORUBICIN HCL [Suspect]
     Indication: CHEMOTHERAPY
     Dosage: 25.75 MG, 1X/DAY
     Route: 042
     Dates: start: 20111007, end: 20111008
  8. CYTARABINE [Suspect]
     Indication: CHEMOTHERAPY
     Dosage: 30 MG, SINGLE
     Route: 037
     Dates: start: 20111005, end: 20111005
  9. CYCLOPHOSPHAMIDE [Suspect]
     Indication: CHEMOTHERAPY
     Dosage: 206 MG, 2X/DAY
     Route: 042
     Dates: start: 20111005, end: 20111008
  10. DEXAMETHASONE SODIUM PHOSPHATE [Suspect]
     Indication: CHEMOTHERAPY
     Dosage: 4 MG, 2X/DAY
     Route: 042
     Dates: start: 20111007, end: 20111009
  11. VINCRISTINE [Suspect]
     Indication: CHEMOTHERAPY
     Dosage: 1.55 MG, SINGLE
     Route: 042
     Dates: start: 20111004, end: 20111004
  12. HELICID [Concomitant]
     Indication: PROPHYLAXIS
     Dosage: 20 MG, 1X/DAY
     Route: 042
     Dates: start: 20111007, end: 20111008
  13. ZOFRAN [Concomitant]
     Indication: PROPHYLAXIS OF NAUSEA AND VOMITING
     Dosage: 6 MG, 3X/DAY
     Route: 042
     Dates: start: 20111004, end: 20111009
  14. VORICONAZOLE [Suspect]
     Indication: OESOPHAGEAL CANDIDIASIS
     Dosage: 110 MG, 2X/DAY
     Route: 042
     Dates: start: 20110917, end: 20110921
  15. PREDNISOLONE [Suspect]
     Indication: CHEMOTHERAPY
     Dosage: 10 MG, SINGLE
     Route: 037
     Dates: start: 20111005, end: 20111005
  16. DEXAMETHASONE [Suspect]
     Indication: CHEMOTHERAPY
     Dosage: 4 MG, 2X/DAY
     Route: 048
     Dates: start: 20111004, end: 20111007
  17. ACETAMINOPHEN [Concomitant]
     Indication: PAIN
     Dosage: 440 MG, AS NEEDED
     Route: 042
     Dates: start: 20111004
  18. FUROSEMIDE [Concomitant]
     Indication: FLUID RETENTION
     Dosage: 15 MG, AS NEEDED
     Route: 042
     Dates: start: 20111004
  19. NOVALGIN [Concomitant]
     Indication: PAIN
     Dosage: 0.9 ML, AS NEEDED
     Route: 042
     Dates: start: 20111004

REACTIONS (1)
  - POSTERIOR REVERSIBLE ENCEPHALOPATHY SYNDROME [None]
